FAERS Safety Report 7028189-9 (Version None)
Quarter: 2010Q3

REPORT INFORMATION
  Report Type: 
  Country: None (occurrence: None)
  Receive Date: 20100930
  Receipt Date: 20100914
  Transmission Date: 20110219
  Serious: Yes (Disabling, Other)
  Sender: FDA-Public Use
  Company Number: ACO_00887_2010

PATIENT
  Sex: Female
  Weight: 63.5036 kg

DRUGS (6)
  1. AMPYRA [Suspect]
     Indication: MULTIPLE SCLEROSIS
     Dosage: 10 MG QD, ORAL 10 MG BID ORAL
     Dates: start: 20100310, end: 20100509
  2. AMPYRA [Suspect]
     Indication: MULTIPLE SCLEROSIS
     Dosage: 10 MG QD, ORAL 10 MG BID ORAL
     Dates: start: 20100510
  3. FENTANYL [Concomitant]
  4. AMANTADINE [Concomitant]
  5. AVONEX [Concomitant]
  6. CLONAZEPAM [Concomitant]

REACTIONS (3)
  - ABASIA [None]
  - MULTIPLE SCLEROSIS RELAPSE [None]
  - URINARY TRACT INFECTION [None]
